FAERS Safety Report 23187544 (Version 2)
Quarter: 2023Q4

REPORT INFORMATION
  Report Type: Spontaneous
  Country: DE (occurrence: DE)
  Receive Date: 20231115
  Receipt Date: 20231211
  Transmission Date: 20240110
  Serious: Yes (Disabling, Other)
  Sender: FDA-Public Use
  Company Number: DE-PFIZER INC-PV202300175510

PATIENT
  Age: 81 Year
  Sex: Female
  Weight: 66 kg

DRUGS (6)
  1. PROPOFOL [Suspect]
     Active Substance: PROPOFOL
     Indication: Product used for unknown indication
     Dosage: UNK
     Route: 065
     Dates: end: 20230102
  2. FAMTOZINAMERAN\TOZINAMERAN [Suspect]
     Active Substance: FAMTOZINAMERAN\TOZINAMERAN
     Indication: COVID-19 immunisation
     Dosage: DOSE 4 (BOOSTER), SINGLE?SOLUTION FOR INJECTION
     Route: 030
     Dates: start: 20221018, end: 20221018
  3. COMIRNATY NOS [Suspect]
     Active Substance: COVID-19 VACCINE
     Indication: COVID-19 immunisation
     Route: 030
     Dates: start: 202211, end: 202211
  4. ANASTROZOLE [Concomitant]
     Active Substance: ANASTROZOLE
     Indication: Breast cancer
     Dosage: UNK
     Route: 048
     Dates: start: 2017
  5. SPIRONOLACTONE [Concomitant]
     Active Substance: SPIRONOLACTONE
     Indication: Blood pressure abnormal
     Dosage: UNK
     Route: 048
     Dates: start: 2000
  6. SIMVASTATIN [Concomitant]
     Active Substance: SIMVASTATIN
     Indication: Blood cholesterol abnormal
     Dosage: UNK
     Route: 048
     Dates: start: 1985

REACTIONS (7)
  - Joint arthroplasty [Unknown]
  - Muscle spasms [Not Recovered/Not Resolved]
  - Magnesium deficiency [Unknown]
  - Asthenia [Not Recovered/Not Resolved]
  - Drug interaction [Unknown]
  - Fatigue [Not Recovered/Not Resolved]
  - Feeling of despair [Not Recovered/Not Resolved]

NARRATIVE: CASE EVENT DATE: 20230102
